FAERS Safety Report 13102550 (Version 1)
Quarter: 2017Q1

REPORT INFORMATION
  Report Type: Spontaneous
  Country: US (occurrence: US)
  Receive Date: 20170110
  Receipt Date: 20170110
  Transmission Date: 20170428
  Serious: Yes (Other)
  Sender: FDA-Public Use
  Company Number: US-PFIZER INC-2017009300

PATIENT
  Sex: Female
  Weight: 96 kg

DRUGS (2)
  1. GABAPENTIN. [Suspect]
     Active Substance: GABAPENTIN
     Indication: FIBROMYALGIA
     Dosage: 300 MG, 3X/DAY
     Route: 048
  2. EFFEXOR [Concomitant]
     Active Substance: VENLAFAXINE HYDROCHLORIDE
     Indication: BIPOLAR DISORDER
     Dosage: 187.5 MG, 1X/DAY
     Route: 048

REACTIONS (6)
  - Product use issue [Unknown]
  - Suicidal ideation [Unknown]
  - Dysphemia [Unknown]
  - Amnesia [Unknown]
  - Impaired work ability [Unknown]
  - Feeling abnormal [Unknown]
